FAERS Safety Report 6244949-6 (Version None)
Quarter: 2009Q2

REPORT INFORMATION
  Report Type: 
  Country: None (occurrence: None)
  Receive Date: 20090625
  Receipt Date: 20090618
  Transmission Date: 20091009
  Serious: Yes (Other)
  Sender: FDA-Public Use
  Company Number: PHHY2009BR24640

PATIENT
  Age: 24 Year
  Sex: Female

DRUGS (1)
  1. VOLTAREN [Suspect]
     Indication: OROPHARYNGEAL PAIN
     Dosage: 1 DF, ONCE/SINGLE
     Dates: start: 19990101

REACTIONS (1)
  - LARYNGEAL OEDEMA [None]
